FAERS Safety Report 17083764 (Version 1)
Quarter: 2019Q4

REPORT INFORMATION
  Report Type: Report from Study
  Country: US (occurrence: US)
  Receive Date: 20191127
  Receipt Date: 20191127
  Transmission Date: 20200122
  Serious: Yes (Death, Life-Threatening, Other)
  Sender: FDA-Public Use
  Company Number: US-BAYER-2019-209740

PATIENT
  Age: 37 Year
  Sex: Male

DRUGS (1)
  1. ACETAMINOPHEN. [Suspect]
     Active Substance: ACETAMINOPHEN

REACTIONS (12)
  - Coma [None]
  - Hypoglycaemia [None]
  - Hypotension [None]
  - Depressed level of consciousness [None]
  - Metabolic acidosis [None]
  - Toxicity to various agents [Fatal]
  - Acute kidney injury [None]
  - Pancreatitis [None]
  - Coagulopathy [None]
  - Hepatotoxicity [None]
  - Anion gap increased [None]
  - Thrombocytopenia [None]
